FAERS Safety Report 18397131 (Version 2)
Quarter: 2020Q4

REPORT INFORMATION
  Report Type: Spontaneous
  Country: US (occurrence: US)
  Receive Date: 20201019
  Receipt Date: 20201209
  Transmission Date: 20210114
  Serious: No
  Sender: FDA-Public Use
  Company Number: US-GLAXOSMITHKLINE-US2020AMR202795

PATIENT
  Sex: Male

DRUGS (1)
  1. ALBUTEROL SULFATE. [Suspect]
     Active Substance: ALBUTEROL SULFATE
     Indication: EMPHYSEMA
     Dosage: UNK
     Route: 065

REACTIONS (5)
  - Product storage error [Unknown]
  - Wrong technique in device usage process [Unknown]
  - Underdose [Unknown]
  - Product use in unapproved indication [Unknown]
  - Product complaint [Unknown]
